FAERS Safety Report 21712422 (Version 1)
Quarter: 2022Q4

REPORT INFORMATION
  Report Type: Spontaneous
  Country: US (occurrence: None)
  Receive Date: 20221212
  Receipt Date: 20221212
  Transmission Date: 20230113
  Serious: No
  Sender: FDA-Public Use
  Company Number: 2022A386677

PATIENT
  Age: 1095 Month
  Sex: Male

DRUGS (1)
  1. BUDESONIDE\FORMOTEROL\GLYCOPYRRONIUM [Suspect]
     Active Substance: BUDESONIDE\FORMOTEROL\GLYCOPYRRONIUM
     Indication: Dyspnoea
     Route: 055
     Dates: start: 202211, end: 202211

REACTIONS (5)
  - Candida infection [Not Recovered/Not Resolved]
  - Incontinence [Not Recovered/Not Resolved]
  - Speech disorder [Recovered/Resolved]
  - Oropharyngeal discomfort [Recovered/Resolved]
  - Off label use [Unknown]

NARRATIVE: CASE EVENT DATE: 20221101
